FAERS Safety Report 24900451 (Version 1)
Quarter: 2025Q1

REPORT INFORMATION
  Report Type: Spontaneous
  Country: US (occurrence: None)
  Receive Date: 20250118
  Receipt Date: 20250118
  Transmission Date: 20250408
  Serious: Yes (Hospitalization, Disabling)
  Sender: FDA-CTU
  Company Number: None

PATIENT
  Age: 30 Year
  Sex: Female
  Weight: 72 kg

DRUGS (3)
  1. FOLLISTIM [Suspect]
     Active Substance: FOLLITROPIN
     Indication: Oocyte donation
  2. FLUOXETINE [Concomitant]
     Active Substance: FLUOXETINE HYDROCHLORIDE
  3. WOMEN^S DAILY GUMMY [Concomitant]

REACTIONS (3)
  - Ovarian hyperstimulation syndrome [None]
  - Insurance issue [None]
  - Post procedural complication [None]

NARRATIVE: CASE EVENT DATE: 20240424
